FAERS Safety Report 8516706 (Version 2)
Quarter: 2013Q1

REPORT INFORMATION
  Report Type: Spontaneous
  Country: US (occurrence: US)
  Receive Date: 20120417
  Receipt Date: 20130222
  Transmission Date: 20140127
  Serious: No
  Sender: FDA-Public Use
  Company Number: US-ASTRAZENECA-2011SE18631

PATIENT
  Age: 61 Year
  Sex: Male
  Weight: 100.2 kg

DRUGS (9)
  1. NEXIUM [Suspect]
     Indication: DYSPHAGIA
     Route: 048
     Dates: start: 2001
  2. MEDICATION FOR HYPERTENSION [Concomitant]
  3. CIPRO [Concomitant]
     Route: 048
  4. VICODIN [Concomitant]
     Indication: PAIN
     Dosage: 5 MG-500 MG TAKE 1 DF EVERY 4 TO 6 HOURS
     Route: 048
  5. PROCARDIA XL [Concomitant]
     Route: 048
  6. CRESTOR [Concomitant]
     Route: 048
  7. ALLEGRA-D [Concomitant]
     Dosage: 120-60 MG 1 DF TWO TIMES A DAY
     Route: 048
  8. MICARDIS HCT [Concomitant]
     Dosage: 80/12.5 1 DF EVERY DAY
     Route: 048
  9. K DUR [Concomitant]
     Dosage: 20 MEQ 1 DF EVERY DAY WITH FOOD

REACTIONS (7)
  - Nephrolithiasis [Recovered/Resolved]
  - Calculus ureteric [Unknown]
  - Pollakiuria [Unknown]
  - Dysuria [Unknown]
  - Back pain [Unknown]
  - Bone density decreased [Unknown]
  - Off label use [Unknown]
